FAERS Safety Report 7177423 (Version 4)
Quarter: 2012Q4

REPORT INFORMATION
  Report Type: 
  Country: US (occurrence: US)
  Receive Date: 20091116
  Receipt Date: 20121217
  Transmission Date: 20130627
  Serious: Yes (Hospitalization)
  Sender: FDA-Public Use
  Company Number: PHHO2009US13743

PATIENT
  Age: 75 Year
  Sex: Male
  Weight: 68.93 kg

DRUGS (11)
  1. AFINITOR [Suspect]
     Indication: GLIOBLASTOMA MULTIFORME
     Dosage: 10 mg, QD
     Dates: start: 20090930, end: 20091014
  2. AFINITOR [Suspect]
     Dosage: UNK
     Dates: start: 20091110
  3. AVASTIN [Suspect]
     Indication: GLIOBLASTOMA MULTIFORME
     Dosage: 753 mg, QD
     Dates: start: 20090720, end: 20090831
  4. AVASTIN [Suspect]
     Dosage: 707 mg, QD
     Dates: start: 20090930, end: 20091014
  5. AVASTIN [Suspect]
     Dosage: UNK
  6. TEMOZOLOMIDE [Suspect]
     Indication: GLIOBLASTOMA MULTIFORME
     Dosage: 140 mg, QD
     Dates: start: 20090720, end: 20090831
  7. CONTRAST MEDIA [Concomitant]
  8. TRICOR [Concomitant]
  9. HYDROCHLOROTHIAZIDE W/TELMISARTAN [Concomitant]
     Indication: HYPERTENSION
  10. KEPPRA [Concomitant]
  11. COLACE [Concomitant]

REACTIONS (18)
  - Pneumonia [Recovered/Resolved]
  - Deep vein thrombosis [Recovered/Resolved]
  - Pneumonitis [Recovered/Resolved]
  - Pain in extremity [Recovered/Resolved]
  - Pulmonary embolism [Recovering/Resolving]
  - Chest pain [Recovered/Resolved]
  - Musculoskeletal pain [Recovering/Resolving]
  - Lung infiltration [Recovered/Resolved]
  - Lung consolidation [Recovered/Resolved]
  - Pleural effusion [Recovered/Resolved]
  - Atelectasis [Recovered/Resolved]
  - Pulmonary mass [Recovered/Resolved]
  - Arteriosclerosis [Recovered/Resolved]
  - Inflammation [Recovered/Resolved]
  - Lung infiltration malignant [Recovered/Resolved]
  - Hilar lymphadenopathy [Recovered/Resolved]
  - Spinal osteoarthritis [Recovered/Resolved]
  - Grand mal convulsion [Recovered/Resolved]
